FAERS Safety Report 22300299 (Version 2)
Quarter: 2023Q2

REPORT INFORMATION
  Report Type: Spontaneous
  Country: ES (occurrence: ES)
  Receive Date: 20230509
  Receipt Date: 20230531
  Transmission Date: 20230721
  Serious: Yes (Other)
  Sender: FDA-Public Use
  Company Number: ES-JNJFOC-20230507171

PATIENT
  Sex: Male

DRUGS (2)
  1. ERLEADA [Suspect]
     Active Substance: APALUTAMIDE
     Indication: Hormone-dependent prostate cancer
     Route: 048
     Dates: start: 20230118
  2. PREDNISONE [Concomitant]
     Active Substance: PREDNISONE
     Dates: start: 20230424

REACTIONS (5)
  - Neutropenia [Unknown]
  - Leukopenia [Unknown]
  - Eosinophilic cellulitis [Unknown]
  - Diarrhoea [Unknown]
  - Vitamin D deficiency [Unknown]
